FAERS Safety Report 15709383 (Version 1)
Quarter: 2018Q4

REPORT INFORMATION
  Report Type: Spontaneous
  Country: GB (occurrence: GB)
  Receive Date: 20181211
  Receipt Date: 20181211
  Transmission Date: 20190205
  Serious: Yes (Hospitalization)
  Sender: FDA-Public Use
  Company Number: GB-TEVA-2018-GB-985023

PATIENT
  Age: 32 Year
  Sex: Male

DRUGS (1)
  1. WARFARIN [Suspect]
     Active Substance: WARFARIN
     Route: 065

REACTIONS (3)
  - Anticoagulation drug level below therapeutic [Unknown]
  - Thrombotic stroke [Unknown]
  - Product monitoring error [Unknown]

NARRATIVE: CASE EVENT DATE: 20171014
